FAERS Safety Report 18823686 (Version 1)
Quarter: 2021Q1

REPORT INFORMATION
  Report Type: Spontaneous
  Country: US (occurrence: US)
  Receive Date: 20210201
  Receipt Date: 20210201
  Transmission Date: 20210419
  Serious: No
  Sender: FDA-Public Use
  Company Number: US-ABBVIE-20K-163-3253489-00

PATIENT
  Age: 59 Year
  Sex: Female
  Weight: 88.9 kg

DRUGS (3)
  1. REMICADE [Suspect]
     Active Substance: INFLIXIMAB
     Indication: HIDRADENITIS
     Route: 065
     Dates: start: 20190711
  2. REMICADE [Suspect]
     Active Substance: INFLIXIMAB
     Route: 065
  3. HUMIRA [Suspect]
     Active Substance: ADALIMUMAB
     Indication: HIDRADENITIS
     Route: 058
     Dates: start: 2017, end: 20190704

REACTIONS (4)
  - Therapeutic product effect decreased [Unknown]
  - Pain [Unknown]
  - Hidradenitis [Unknown]
  - Vulvovaginal swelling [Unknown]

NARRATIVE: CASE EVENT DATE: 201907
